FAERS Safety Report 22117277 (Version 1)
Quarter: 2023Q1

REPORT INFORMATION
  Report Type: Spontaneous
  Country: GB (occurrence: GB)
  Receive Date: 20230320
  Receipt Date: 20230320
  Transmission Date: 20230418
  Serious: Yes (Other)
  Sender: FDA-Public Use
  Company Number: GB-MHRA-MED-202303091129088680-FJQVW

PATIENT
  Sex: Male

DRUGS (1)
  1. LEVOFLOXACIN [Suspect]
     Active Substance: LEVOFLOXACIN
     Indication: Product used for unknown indication
     Dosage: 1000 MILLIGRAM DAILY; 500MG BD FOR 1 WEEK
     Route: 065

REACTIONS (1)
  - Tendon pain [Recovered/Resolved]

NARRATIVE: CASE EVENT DATE: 20230301
